FAERS Safety Report 12199170 (Version 1)
Quarter: 2016Q1

REPORT INFORMATION
  Report Type: Spontaneous
  Country: US (occurrence: None)
  Receive Date: 20160321
  Receipt Date: 20160321
  Transmission Date: 20160526
  Serious: Yes (Disabling, Other)
  Sender: FDA-Public Use
  Company Number: None

PATIENT
  Age: 56 Year
  Sex: Male
  Weight: 83.46 kg

DRUGS (7)
  1. CARAC [Suspect]
     Active Substance: FLUOROURACIL
     Indication: SKIN CANCER
     Dosage: CREAM ONCE DAILY APPLIED TO A SURFACE, USUALLY THE SKIN
     Route: 061
     Dates: start: 20160103, end: 20160123
  2. FISH OIL [Concomitant]
     Active Substance: FISH OIL
  3. BABY ASPIRIN [Concomitant]
     Active Substance: ASPIRIN
  4. AMBIEN [Concomitant]
     Active Substance: ZOLPIDEM TARTRATE
  5. VITAMIN E [Concomitant]
     Active Substance: .ALPHA.-TOCOPHEROL
  6. CRESTOR [Concomitant]
     Active Substance: ROSUVASTATIN CALCIUM
  7. C [Concomitant]

REACTIONS (5)
  - Fatigue [None]
  - Brain oedema [None]
  - Head discomfort [None]
  - Asthenia [None]
  - Ocular discomfort [None]

NARRATIVE: CASE EVENT DATE: 20160110
